FAERS Safety Report 6307744-5 (Version None)
Quarter: 2009Q3

REPORT INFORMATION
  Report Type: 
  Country: None (occurrence: None)
  Receive Date: 20090812
  Receipt Date: 20090812
  Transmission Date: 20100115
  Serious: Yes (Life-Threatening, Other)
  Sender: FDA-Public Use
  Company Number: None

PATIENT
  Age: 54 Year
  Sex: Female
  Weight: 76.2043 kg

DRUGS (1)
  1. KEPPRA [Suspect]
     Indication: CONVULSION
     Dates: start: 20090625, end: 20090711

REACTIONS (4)
  - BACK PAIN [None]
  - CONVULSION [None]
  - PAIN IN JAW [None]
  - PRODUCT SUBSTITUTION ISSUE [None]
